FAERS Safety Report 5106561-1 (Version None)
Quarter: 2006Q3

REPORT INFORMATION
  Report Type: 
  Country: None (occurrence: None)
  Receive Date: 20060918
  Receipt Date: 20060911
  Transmission Date: 20061208
  Serious: Yes (Hospitalization)
  Sender: FDA-Public Use
  Company Number: IT-GLAXOSMITHKLINE-B0438204A

PATIENT
  Age: 38 Year
  Sex: Female

DRUGS (1)
  1. AMOXICILLIN + CLAVULANIC ACID [Suspect]
     Dosage: 1G TWICE PER DAY
     Route: 048
     Dates: start: 20060901, end: 20060903

REACTIONS (1)
  - DERMATITIS ALLERGIC [None]
